FAERS Safety Report 5792395-1 (Version None)
Quarter: 2008Q2

REPORT INFORMATION
  Report Type: 
  Country: None (occurrence: None)
  Receive Date: 20080626
  Receipt Date: 20080403
  Transmission Date: 20081010
  Serious: No
  Sender: FDA-Public Use
  Company Number: US-ASTRAZENECA-2008UW06769

PATIENT
  Age: 64 Year
  Sex: Female
  Weight: 68 kg

DRUGS (9)
  1. PULMICORT RESPULES [Suspect]
     Indication: ASTHMA
     Dosage: 0.5 MG
     Route: 055
  2. PULMICORT RESPULES [Suspect]
     Dosage: 1 MG
     Route: 055
  3. PULMICORT RESPULES [Suspect]
     Dosage: 0.5 MG
     Route: 055
  4. INSULIN PUMP [Concomitant]
  5. XOPINEX [Concomitant]
  6. METOPROLOL [Concomitant]
  7. POTASSIUM SUPPLEMENT [Concomitant]
  8. HYDROCHLOROTHIAZIDE [Concomitant]
  9. CLONIDINE [Concomitant]

REACTIONS (1)
  - STOMATITIS [None]
